FAERS Safety Report 15043695 (Version 6)
Quarter: 2019Q2

REPORT INFORMATION
  Report Type: Spontaneous
  Country: DE (occurrence: DE)
  Receive Date: 20180621
  Receipt Date: 20190405
  Transmission Date: 20190711
  Serious: Yes (Hospitalization, Other)
  Sender: FDA-Public Use
  Company Number: DE-ASCEND THERAPEUTICS-2049772

PATIENT
  Age: 45 Year
  Sex: Female

DRUGS (14)
  1. PROGESTAN (PROGESTERONE) [Suspect]
     Active Substance: PROGESTERONE
     Route: 067
     Dates: start: 201505, end: 201512
  2. EUTHYROX [Concomitant]
     Active Substance: LEVOTHYROXINE SODIUM
     Route: 048
  3. VITAMIN B COMPLEX [Concomitant]
     Active Substance: CYANOCOBALAMIN\DEXPANTHENOL\NIACINAMIDE\PYRIDOXINE HYDROCHLORIDE\RIBOFLAVIN 5^-PHOSPHATE SODIUM\THIAMINE HYDROCHLORIDE\VITAMIN B COMPLEX
     Route: 065
  4. LINOLADIOL HN (PREDNISOLONE, ESTRADIOL) OINTMENT [Suspect]
     Active Substance: ESTRADIOL\PREDNISOLONE
     Route: 061
     Dates: start: 201801, end: 201805
  5. ESTRADIOL. [Suspect]
     Active Substance: ESTRADIOL
     Route: 062
     Dates: start: 2018, end: 2018
  6. ESTROGEL [Suspect]
     Active Substance: ESTRADIOL
     Indication: HORMONE REPLACEMENT THERAPY
     Route: 062
     Dates: start: 201503, end: 201503
  7. LINOLADIOL NH (PREDNISOLONE, ESTRADIOL) [Suspect]
     Active Substance: ESTRADIOL\PREDNISOLONE
     Route: 061
     Dates: start: 201801, end: 201805
  8. ESTRADIOL. [Suspect]
     Active Substance: ESTRADIOL
     Route: 062
  9. VITAMIN D (ERGOCALCIFEROL) [Concomitant]
     Active Substance: ERGOCALCIFEROL
     Route: 065
  10. ESTRADIOL. [Suspect]
     Active Substance: ESTRADIOL
     Route: 062
     Dates: start: 201805, end: 201805
  11. DUPHASTON [Concomitant]
     Active Substance: DYDROGESTERONE
     Route: 048
     Dates: start: 201601
  12. EUTHYROX [Concomitant]
     Active Substance: LEVOTHYROXINE SODIUM
     Route: 048
  13. GYNOKADIN DOSIERGEL  (ESTRADIOL HEMIHYDRATE) [Suspect]
     Active Substance: ESTRADIOL HEMIHYDRATE
     Route: 062
     Dates: start: 2018, end: 2018
  14. MIRTAZAPIN (MIRTAZAPINE) [Concomitant]
     Active Substance: MIRTAZAPINE
     Route: 048
     Dates: start: 2013, end: 201805

REACTIONS (10)
  - Histamine intolerance [Not Recovered/Not Resolved]
  - Oestradiol increased [Recovering/Resolving]
  - Fatigue [Recovered/Resolved]
  - Potentiating drug interaction [Recovered/Resolved]
  - Menorrhagia [Recovered/Resolved]
  - Product use issue [Not Recovered/Not Resolved]
  - Lichen sclerosus [Recovered/Resolved]
  - Breast enlargement [Not Recovered/Not Resolved]
  - Fatigue [Recovered/Resolved]
  - Performance status decreased [Not Recovered/Not Resolved]

NARRATIVE: CASE EVENT DATE: 2015
